FAERS Safety Report 15035213 (Version 1)
Quarter: 2018Q2

REPORT INFORMATION
  Report Type: Spontaneous
  Country: US (occurrence: US)
  Receive Date: 20180620
  Receipt Date: 20180620
  Transmission Date: 20180711
  Serious: Yes (Death, Other)
  Sender: FDA-Public Use
  Company Number: US-ROCHE-2140422

PATIENT
  Age: 75 Year
  Sex: Female

DRUGS (1)
  1. ACTEMRA [Suspect]
     Active Substance: TOCILIZUMAB
     Indication: RHEUMATOID ARTHRITIS
     Dosage: ONGOING: NO
     Route: 058

REACTIONS (6)
  - Death [Fatal]
  - Neoplasm [Unknown]
  - Colitis [Unknown]
  - Thrombosis [Unknown]
  - Skin ulcer [Unknown]
  - Megacolon [Unknown]

NARRATIVE: CASE EVENT DATE: 20180613
